FAERS Safety Report 6801260-X (Version None)
Quarter: 2010Q2

REPORT INFORMATION
  Report Type: 
  Country: None (occurrence: None)
  Receive Date: 20100629
  Receipt Date: 20100623
  Transmission Date: 20101027
  Serious: Yes (Death, Life-Threatening, Hospitalization)
  Sender: FDA-Public Use
  Company Number: FR-CELGENEUS-056-50794-10062588

PATIENT
  Sex: Female
  Weight: 52 kg

DRUGS (7)
  1. VIDAZA [Suspect]
     Route: 058
     Dates: start: 20100607, end: 20100611
  2. REVLIMID [Suspect]
     Route: 048
     Dates: start: 20100607, end: 20100617
  3. TEGRETOL [Concomitant]
     Indication: EPILEPSY
     Route: 048
     Dates: start: 19950101, end: 20100621
  4. PIASCLEDINE [Concomitant]
     Indication: DRUG USE FOR UNKNOWN INDICATION
     Route: 048
     Dates: start: 20100301, end: 20100621
  5. KARDEGIC [Concomitant]
     Indication: DRUG USE FOR UNKNOWN INDICATION
     Route: 048
     Dates: start: 20100301, end: 20100621
  6. OROCAL [Concomitant]
     Indication: DRUG USE FOR UNKNOWN INDICATION
     Route: 048
     Dates: start: 20100301, end: 20100621
  7. RED BLOOD CELLS [Concomitant]
     Route: 051
     Dates: start: 20100617, end: 20100617

REACTIONS (2)
  - DEATH [None]
  - LUNG DISORDER [None]
